FAERS Safety Report 9231331 (Version 2)
Quarter: 2013Q2

REPORT INFORMATION
  Report Type: Spontaneous
  Country: US (occurrence: US)
  Receive Date: 20130415
  Receipt Date: 20130531
  Transmission Date: 20140414
  Serious: No
  Sender: FDA-Public Use
  Company Number: US-009507513-1304USA004715

PATIENT
  Sex: Female

DRUGS (1)
  1. IMPLANON [Suspect]
     Dosage: UNK
     Route: 059
     Dates: start: 2010, end: 20130515

REACTIONS (3)
  - Weight increased [Unknown]
  - Medical device complication [Recovered/Resolved]
  - Device dislocation [Recovered/Resolved]
